FAERS Safety Report 4296674-9 (Version None)
Quarter: 2004Q1

REPORT INFORMATION
  Report Type: 
  Country: None (occurrence: None)
  Receive Date: 20040217
  Receipt Date: 20040211
  Transmission Date: 20041129
  Serious: Yes (Death)
  Sender: FDA-Public Use
  Company Number: WAES 0402FRA00031

PATIENT
  Age: 78 Year
  Sex: Male

DRUGS (10)
  1. AMLODIPINE BESYLATE [Suspect]
     Route: 048
     Dates: end: 20030720
  2. ATENOLOL [Suspect]
     Route: 048
     Dates: end: 20030720
  3. BISOPROLOL [Suspect]
     Route: 048
     Dates: start: 20030720, end: 20030920
  4. FLUTICASONE PROPIONATE [Concomitant]
  5. FUROSEMIDE [Concomitant]
  6. LISINOPRIL [Concomitant]
  7. NIFEDIPINE [Concomitant]
  8. OMEPRAZOLE SODIUM [Concomitant]
  9. PREDNISOLONE SODIUM METASULFOBENZOATE [Concomitant]
  10. ZOCOR [Suspect]
     Route: 048
     Dates: start: 20000615, end: 20030920

REACTIONS (2)
  - INTERSTITIAL LUNG DISEASE [None]
  - PULMONARY FIBROSIS [None]
